FAERS Safety Report 8171537-7 (Version None)
Quarter: 2012Q1

REPORT INFORMATION
  Report Type: 
  Country: None (occurrence: None)
  Receive Date: 20120228
  Receipt Date: 20120217
  Transmission Date: 20120608
  Serious: Yes (Other)
  Sender: FDA-Public Use
  Company Number: PHHY2012US014473

PATIENT
  Sex: Female

DRUGS (1)
  1. GENTEAL [Suspect]
     Indication: DRY EYE
     Dosage: UNK
     Route: 047
     Dates: end: 20120215

REACTIONS (3)
  - FOREIGN BODY IN EYE [None]
  - OCULAR HYPERAEMIA [None]
  - CONJUNCTIVAL HAEMORRHAGE [None]
